FAERS Safety Report 13391606 (Version 1)
Quarter: 2017Q1

REPORT INFORMATION
  Report Type: Spontaneous
  Country: US (occurrence: US)
  Receive Date: 20170331
  Receipt Date: 20170331
  Transmission Date: 20170429
  Serious: No
  Sender: FDA-Public Use
  Company Number: US-MYLANLABS-2016M1012404

PATIENT
  Sex: Female
  Weight: 49.89 kg

DRUGS (1)
  1. FENTANYL TRANSDERMAL SYSTEM [Suspect]
     Active Substance: FENTANYL
     Indication: PAIN
     Dosage: 50 ?G/HR, Q48H
     Route: 062

REACTIONS (2)
  - Blood prolactin increased [Not Recovered/Not Resolved]
  - Lactation disorder [Not Recovered/Not Resolved]
